FAERS Safety Report 9503738 (Version 1)
Quarter: 2013Q3

REPORT INFORMATION
  Report Type: Spontaneous
  Country: US (occurrence: US)
  Receive Date: 20130906
  Receipt Date: 20130906
  Transmission Date: 20140515
  Serious: Yes (Hospitalization)
  Sender: FDA-Public Use
  Company Number: US-ASTRAZENECA-2013SE66893

PATIENT
  Age: 53 Year
  Sex: Male
  Weight: 86.2 kg

DRUGS (3)
  1. NEXIUM [Suspect]
     Indication: GASTROOESOPHAGEAL REFLUX DISEASE
     Route: 048
     Dates: start: 2001
  2. VITAMINS [Concomitant]
     Indication: VITAMIN SUPPLEMENTATION
  3. OTC ASPIRIN [Concomitant]
     Indication: ANTICOAGULANT THERAPY

REACTIONS (4)
  - Intervertebral disc protrusion [Unknown]
  - Body height decreased [Unknown]
  - Drug effect decreased [Unknown]
  - Dyspepsia [Unknown]
